FAERS Safety Report 6120304-4 (Version None)
Quarter: 2009Q1

REPORT INFORMATION
  Report Type: 
  Country: None (occurrence: None)
  Receive Date: 20090312
  Receipt Date: 20090224
  Transmission Date: 20090719
  Serious: No
  Sender: FDA-Public Use
  Company Number: 6044884

PATIENT
  Age: 54 Year
  Sex: Female

DRUGS (7)
  1. LEVOTHYROXINE SODIUM [Suspect]
     Indication: MAJOR DEPRESSION
  2. TRYPTOPHAN, L-(TRYTOPHAN, L) [Suspect]
     Indication: MAJOR DEPRESSION
     Dosage: 6 GM (2 GM, 3 IN 1 D)
  3. CLOMIPRAMINE HCL [Suspect]
     Indication: MAJOR DEPRESSION
     Dosage: 250 MG , 1 IN 1 D
  4. LITHIUM CARBONATE [Suspect]
     Indication: MAJOR DEPRESSION
     Dosage: 800 MG (800 MG, 1 IN 1 D)
  5. QUETIAPINE FUMARATE [Suspect]
     Indication: MAJOR DEPRESSION
     Dosage: 800 MG (800 MG, 1 IN 1 D)
  6. ETOMIDATE [Suspect]
     Indication: ANAESTHESIA
     Dosage: 16 MG
  7. SUXAMETHONIUM (SUXAMETHONIUM) [Concomitant]

REACTIONS (8)
  - ANHEDONIA [None]
  - ANTIDEPRESSANT DRUG LEVEL ABOVE THERAPEUTIC [None]
  - ASTHENIA [None]
  - EMOTIONAL DISTRESS [None]
  - EPILEPSY [None]
  - INSOMNIA [None]
  - MOOD ALTERED [None]
  - TERMINAL INSOMNIA [None]
